FAERS Safety Report 19066899 (Version 6)
Quarter: 2021Q2

REPORT INFORMATION
  Report Type: Spontaneous
  Country: CA (occurrence: CA)
  Receive Date: 20210329
  Receipt Date: 20210615
  Transmission Date: 20210717
  Serious: Yes (Hospitalization)
  Sender: FDA-Public Use
  Company Number: CA-CELLTRION INC.-2021CA004074

PATIENT

DRUGS (8)
  1. INFLECTRA [Suspect]
     Active Substance: INFLIXIMAB-DYYB
     Indication: COLITIS ULCERATIVE
     Dosage: 400 MG INDUCTION WEEK 0 AND 2, THEN MAINTENANCE Q 8 WEEKS (START DATE AND STOP DATE: 2021)
     Route: 042
  2. INFLECTRA [Suspect]
     Active Substance: INFLIXIMAB-DYYB
     Dosage: 400 MG INDUCTION WEEK 0 AND BOOSTER DOSE
     Route: 042
     Dates: start: 20210315, end: 20210317
  3. INFLECTRA [Suspect]
     Active Substance: INFLIXIMAB-DYYB
     Dosage: 5 MG/KG BOOSTER DOSE DOSE
     Route: 042
     Dates: start: 20210329
  4. METHYLPREDNISOLONE. [Concomitant]
     Active Substance: METHYLPREDNISOLONE
     Dosage: UNKNOWN
     Route: 042
  5. PREDNISONE. [Concomitant]
     Active Substance: PREDNISONE
     Dosage: 40 MG
     Route: 048
  6. INFLECTRA [Suspect]
     Active Substance: INFLIXIMAB-DYYB
     Dosage: 5 MG/KG (ROUNDED UP TO 400MG) DOSE
     Route: 042
     Dates: start: 20210315
  7. INFLECTRA [Suspect]
     Active Substance: INFLIXIMAB-DYYB
     Dosage: 5 MG/KG BOOSTER DOSE DOSE
     Route: 042
     Dates: start: 20210317
  8. PANTOPRAZOLE [Concomitant]
     Active Substance: PANTOPRAZOLE
     Dosage: 1 DF
     Route: 065

REACTIONS (2)
  - Condition aggravated [Recovering/Resolving]
  - Off label use [Unknown]
